FAERS Safety Report 5760822-1 (Version None)
Quarter: 2008Q2

REPORT INFORMATION
  Report Type: 
  Country: None (occurrence: None)
  Receive Date: 20080606
  Receipt Date: 20080603
  Transmission Date: 20081010
  Serious: Yes (Hospitalization)
  Sender: FDA-Public Use
  Company Number: FR-AVENTIS-200812064FR

PATIENT
  Age: 89 Year
  Sex: Male

DRUGS (2)
  1. LASILIX                            /00032601/ [Suspect]
     Route: 048
  2. LOPRIL                             /00498401/ [Suspect]
     Route: 048
     Dates: end: 20080428

REACTIONS (2)
  - HYPERKALAEMIA [None]
  - RENAL FAILURE ACUTE [None]
